FAERS Safety Report 26036345 (Version 1)
Quarter: 2025Q4

REPORT INFORMATION
  Report Type: Report from Study
  Country: CO (occurrence: CO)
  Receive Date: 20251112
  Receipt Date: 20251112
  Transmission Date: 20260117
  Serious: Yes (Hospitalization)
  Sender: ELI LILLY AND COMPANY
  Company Number: CO-Merck Healthcare KGaA-2025056403

PATIENT
  Age: 53 Year
  Sex: Female

DRUGS (2)
  1. CETUXIMAB [Suspect]
     Active Substance: CETUXIMAB
     Indication: Colorectal cancer
     Dosage: 805 MG, 2/M
     Route: 042
     Dates: start: 20250822
  2. ENCORAFENIB [Concomitant]
     Active Substance: ENCORAFENIB
     Indication: Colorectal cancer
     Dosage: UNK

REACTIONS (2)
  - Duodenal stenosis [Recovered/Resolved]
  - Off label use [Unknown]

NARRATIVE: CASE EVENT DATE: 20250822
